FAERS Safety Report 4598173-3 (Version None)
Quarter: 2005Q1

REPORT INFORMATION
  Report Type: 
  Country: None (occurrence: None)
  Receive Date: 20050204
  Receipt Date: 20040402
  Transmission Date: 20050727
  Serious: Yes (Other)
  Sender: FDA-Public Use
  Company Number: PHEH2004US03715

PATIENT
  Age: 43 Year
  Sex: Male
  Weight: 98.9 kg

DRUGS (1)
  1. CLOZARIL [Suspect]

REACTIONS (1)
  - AGRANULOCYTOSIS [None]
